FAERS Safety Report 13774967 (Version 1)
Quarter: 2017Q3

REPORT INFORMATION
  Report Type: Spontaneous
  Country: US (occurrence: US)
  Receive Date: 20170720
  Receipt Date: 20170720
  Transmission Date: 20171127
  Serious: No
  Sender: FDA-Public Use
  Company Number: None

PATIENT
  Sex: Female

DRUGS (1)
  1. ADEFOVIR 10 MG SIGMA PHARM [Suspect]
     Active Substance: ADEFOVIR DIPIVOXIL
     Indication: CHRONIC HEPATITIS B
     Route: 048
     Dates: start: 20161125

REACTIONS (8)
  - Blood pressure fluctuation [None]
  - Muscle tightness [None]
  - Myalgia [None]
  - Somnolence [None]
  - Headache [None]
  - Peripheral coldness [None]
  - Dyspnoea [None]
  - Bone pain [None]
